FAERS Safety Report 12583399 (Version 3)
Quarter: 2016Q3

REPORT INFORMATION
  Report Type: Spontaneous
  Country: US (occurrence: US)
  Receive Date: 20160722
  Receipt Date: 20160819
  Transmission Date: 20161109
  Serious: Yes (Other)
  Sender: FDA-Public Use
  Company Number: US-PFIZER INC-2016351183

PATIENT
  Age: 27 Year
  Sex: Male

DRUGS (2)
  1. LYRICA [Suspect]
     Active Substance: PREGABALIN
     Indication: MUSCULOSKELETAL PAIN
     Dosage: 75 MG, 2X/DAY
     Route: 048
  2. LYRICA [Suspect]
     Active Substance: PREGABALIN
     Dosage: 25 MG, 3X/DAY
     Route: 048

REACTIONS (15)
  - Joint swelling [Unknown]
  - Injury [Unknown]
  - Diarrhoea [Unknown]
  - Mobility decreased [Unknown]
  - Paraesthesia [Unknown]
  - Burning sensation [Unknown]
  - Activities of daily living impaired [Unknown]
  - Decreased appetite [Unknown]
  - Myalgia [Unknown]
  - Suicide attempt [Recovered/Resolved]
  - Hypoaesthesia [Unknown]
  - Asthenia [Unknown]
  - Product use issue [Unknown]
  - Nausea [Unknown]
  - Pain [Unknown]
